FAERS Safety Report 7548671-5 (Version None)
Quarter: 2011Q2

REPORT INFORMATION
  Report Type: 
  Country: None (occurrence: None)
  Receive Date: 20110608
  Receipt Date: 20110525
  Transmission Date: 20111010
  Serious: Yes (Hospitalization, Other)
  Sender: FDA-Public Use
  Company Number: 2011P1006818

PATIENT
  Age: 75 Year
  Sex: Female
  Weight: 62.5964 kg

DRUGS (9)
  1. FENTANYL [Suspect]
     Indication: PAIN
     Dosage: 1 PATCH, Q72 HR, TDER
     Route: 062
     Dates: start: 20100501, end: 20110101
  2. LEVAQUIN [Suspect]
     Dates: start: 20110101
  3. SYNTHROID [Concomitant]
  4. NEURONTIN [Concomitant]
  5. LASIX [Concomitant]
  6. FENTANYL-25 [Suspect]
     Indication: BACK PAIN
     Dosage: 1 PATACH, Q72H, TDER
     Route: 062
     Dates: start: 20110101
  7. OXYCODONE HCL AND ACETAMINOPHEN [Concomitant]
  8. HYDROXYZINE [Concomitant]
  9. XANAX [Concomitant]

REACTIONS (8)
  - OVERDOSE [None]
  - HYPOPHAGIA [None]
  - DEMENTIA [None]
  - TENDON DISORDER [None]
  - LABORATORY TEST ABNORMAL [None]
  - SCREAMING [None]
  - AMNESIA [None]
  - REFUSAL OF TREATMENT BY PATIENT [None]
